FAERS Safety Report 5261105-9 (Version None)
Quarter: 2007Q1

REPORT INFORMATION
  Report Type: 
  Country: None (occurrence: None)
  Receive Date: 20070309
  Receipt Date: 20070302
  Transmission Date: 20070707
  Serious: Yes (Hospitalization)
  Sender: FDA-Public Use
  Company Number: US-ELI_LILLY_AND_COMPANY-US200703000575

PATIENT
  Age: 75 Year
  Sex: Female

DRUGS (6)
  1. HUMULIN N [Suspect]
     Indication: DIABETES MELLITUS
     Dates: start: 19980101
  2. ZOCOR [Concomitant]
  3. COZAAR [Concomitant]
  4. FOLIC ACID [Concomitant]
  5. ASPIRIN [Concomitant]
  6. HUMULIN R [Suspect]
     Indication: DIABETES MELLITUS
     Dates: start: 19980101

REACTIONS (4)
  - FOAMING AT MOUTH [None]
  - GALLBLADDER OPERATION [None]
  - GASTRIC DISORDER [None]
  - STOMACH DISCOMFORT [None]
